FAERS Safety Report 22093889 (Version 1)
Quarter: 2023Q1

REPORT INFORMATION
  Report Type: Spontaneous
  Country: US (occurrence: US)
  Receive Date: 20230314
  Receipt Date: 20230314
  Transmission Date: 20230418
  Serious: Yes (Death, Other)
  Sender: FDA-Public Use
  Company Number: US-BRISTOL-MYERS SQUIBB COMPANY-2023-037134

PATIENT
  Age: 47 Year
  Sex: Male
  Weight: 54 kg

DRUGS (4)
  1. OPDIVO [Suspect]
     Active Substance: NIVOLUMAB
     Indication: Malignant melanoma
     Dosage: FREQ-21 DAY CYCLE FOR 4 CYCLES, THEN A 14 DAY CYCLE AFTER.
     Route: 042
     Dates: start: 202207
  2. OPDIVO [Suspect]
     Active Substance: NIVOLUMAB
     Dosage: REFER TO NARRATIVEINCLUDECLINICAL
     Route: 042
     Dates: start: 202211
  3. YERVOY [Suspect]
     Active Substance: IPILIMUMAB
     Indication: Malignant melanoma
     Dosage: YERVOY: 21 DAY CYCLE FOR 4 CYCLES
     Route: 042
     Dates: start: 202207
  4. KEYTRUDA [Concomitant]
     Active Substance: PEMBROLIZUMAB
     Indication: Product used for unknown indication

REACTIONS (1)
  - Death [Fatal]

NARRATIVE: CASE EVENT DATE: 20221207
